FAERS Safety Report 22331861 (Version 1)
Quarter: 2023Q2

REPORT INFORMATION
  Report Type: Spontaneous
  Country: CA (occurrence: CA)
  Receive Date: 20230517
  Receipt Date: 20230517
  Transmission Date: 20230721
  Serious: Yes (Death)
  Sender: FDA-Public Use
  Company Number: CA-BAYER-2023A064491

PATIENT
  Age: 66 Year
  Sex: Male

DRUGS (1)
  1. NAPROXEN SODIUM [Suspect]
     Active Substance: NAPROXEN SODIUM
     Indication: Pain
     Dosage: UNK

REACTIONS (3)
  - Peritonitis [Fatal]
  - Gastrointestinal ulcer perforation [Fatal]
  - Peptic ulcer haemorrhage [Fatal]
